FAERS Safety Report 4327964-9 (Version None)
Quarter: 2004Q1

REPORT INFORMATION
  Report Type: 
  Country: None (occurrence: None)
  Receive Date: 20040325
  Receipt Date: 20040316
  Transmission Date: 20041129
  Serious: Yes (Hospitalization, Other)
  Sender: FDA-Public Use
  Company Number: USA-2004-0013703

PATIENT
  Age: 20 Year
  Sex: Male

DRUGS (1)
  1. OXYCONTIN [Suspect]
     Dosage: MG, INTRAVENOUS
     Route: 042

REACTIONS (5)
  - CELLULITIS [None]
  - DRUG ABUSER [None]
  - NECROSIS [None]
  - REFUSAL OF TREATMENT BY PATIENT [None]
  - SELF-MEDICATION [None]
